FAERS Safety Report 9399016 (Version 1)
Quarter: 2013Q3

REPORT INFORMATION
  Report Type: Spontaneous
  Country: US (occurrence: US)
  Receive Date: 20130714
  Receipt Date: 20130714
  Transmission Date: 20140515
  Serious: Yes (Other)
  Sender: FDA-Public Use
  Company Number: US-JNJFOC-20130708078

PATIENT
  Sex: Female
  Weight: 72.58 kg

DRUGS (2)
  1. EXTRA STRENGTH TYLENOL [Suspect]
     Indication: ARTHRALGIA
     Dosage: 500MG/CAPLET, 2 CAPLETS 2-3 TIMES PER DAY AS NEEDED
     Route: 048
  2. ASPIRIN [Concomitant]
     Route: 065

REACTIONS (1)
  - Transient ischaemic attack [Unknown]
